FAERS Safety Report 4589333-6 (Version None)
Quarter: 2005Q1

REPORT INFORMATION
  Report Type: 
  Country: None (occurrence: None)
  Receive Date: 20050216
  Receipt Date: 20050216
  Transmission Date: 20050727
  Serious: Yes (Life-Threatening, Hospitalization, Disabling, Other)
  Sender: FDA-Public Use
  Company Number: None

PATIENT
  Age: 28 Year
  Sex: Female
  Weight: 54.4316 kg

DRUGS (1)
  1. LUNELLE [Suspect]
     Dosage: SINGLE USE 0.5 ML VIAL FOR INTRAMUSCULAR USE ONLY
     Route: 030
     Dates: start: 20020429, end: 20021028

REACTIONS (31)
  - ABDOMINAL DISTENSION [None]
  - ABDOMINAL PAIN [None]
  - ASTHENIA [None]
  - BACK PAIN [None]
  - BURNING SENSATION [None]
  - CANDIDIASIS [None]
  - CRYING [None]
  - DIFFICULTY IN WALKING [None]
  - DIZZINESS [None]
  - DYSPAREUNIA [None]
  - FATIGUE [None]
  - FEAR [None]
  - FEELING ABNORMAL [None]
  - FLATULENCE [None]
  - HAEMORRHAGE [None]
  - HEADACHE [None]
  - LIBIDO DECREASED [None]
  - LOSS OF CONSCIOUSNESS [None]
  - NECK PAIN [None]
  - NOCTURIA [None]
  - OEDEMA PERIPHERAL [None]
  - PAIN [None]
  - PAIN IN EXTREMITY [None]
  - PARAESTHESIA [None]
  - PRURITUS [None]
  - SECRETION DISCHARGE [None]
  - SKIN DISCOLOURATION [None]
  - SKIN DISORDER [None]
  - SOMNOLENCE [None]
  - SWELLING FACE [None]
  - VAGINAL PAIN [None]
